FAERS Safety Report 8222645-3 (Version None)
Quarter: 2012Q1

REPORT INFORMATION
  Report Type: 
  Country: None (occurrence: None)
  Receive Date: 20120315
  Receipt Date: 20120229
  Transmission Date: 20120608
  Serious: Yes (Other)
  Sender: FDA-Public Use
  Company Number: DSA_54639_2012

PATIENT
  Sex: Female

DRUGS (1)
  1. ENALAPRIL MALEATE [Suspect]
     Indication: PRODUCT USED FOR UNKNOWN INDICATION
     Dosage: (DF ORAL)
     Route: 048

REACTIONS (8)
  - SLEEP DISORDER [None]
  - NAUSEA [None]
  - KIDNEY TRANSPLANT REJECTION [None]
  - HEADACHE [None]
  - APHAGIA [None]
  - SWELLING [None]
  - PAIN [None]
  - RENAL FAILURE [None]
